FAERS Safety Report 9781778 (Version 5)
Quarter: 2014Q2

REPORT INFORMATION
  Report Type: Spontaneous
  Country: JP (occurrence: JP)
  Receive Date: 20131225
  Receipt Date: 20140603
  Transmission Date: 20141212
  Serious: Yes (Hospitalization, Other)
  Sender: FDA-Public Use
  Company Number: JP-ROCHE-1325011

PATIENT
  Age: 54 Year
  Sex: Male
  Weight: 90 kg

DRUGS (3)
  1. LUCENTIS [Suspect]
     Indication: AGE-RELATED MACULAR DEGENERATION
     Route: 050
     Dates: start: 20131210, end: 20131210
  2. NIFEDINE (JAPAN) [Concomitant]
     Indication: HYPERTENSION
     Route: 048
  3. AMLODIPINE BESILATE [Concomitant]
     Indication: HYPERTENSION
     Route: 048

REACTIONS (18)
  - Gastrointestinal haemorrhage [Recovering/Resolving]
  - Shock haemorrhagic [Recovering/Resolving]
  - Cerebral infarction [Recovering/Resolving]
  - Colon neoplasm [Recovering/Resolving]
  - Blood albumin decreased [Recovering/Resolving]
  - Nephrotic syndrome [Recovering/Resolving]
  - Transient ischaemic attack [Unknown]
  - Vomiting [Unknown]
  - Anaemia [Unknown]
  - Urinary incontinence [Unknown]
  - Oedema peripheral [Unknown]
  - Yawning [Unknown]
  - Cold sweat [Unknown]
  - Somnolence [Unknown]
  - Moaning [Unknown]
  - Snoring [Unknown]
  - Hypotension [Recovered/Resolved]
  - Oxygen saturation decreased [Recovered/Resolved]
